FAERS Safety Report 8476758-1 (Version None)
Quarter: 2012Q2

REPORT INFORMATION
  Report Type: 
  Country: None (occurrence: None)
  Receive Date: 20120628
  Receipt Date: 20120622
  Transmission Date: 20120825
  Serious: Yes (Hospitalization, Disabling, Other)
  Sender: FDA-Public Use
  Company Number: US-MERCK-1205USA04390

PATIENT
  Age: 78 Year
  Sex: Female

DRUGS (5)
  1. FOSAMAX [Suspect]
     Route: 048
     Dates: start: 20000101, end: 20080101
  2. FOSAMAX [Suspect]
     Indication: OSTEOPOROSIS
     Route: 048
     Dates: start: 19960101, end: 20001001
  3. FOSAMAX [Suspect]
     Route: 048
     Dates: start: 20000101, end: 20080101
  4. FOSAMAX [Suspect]
     Indication: PROPHYLAXIS
     Route: 048
     Dates: start: 19960101, end: 20001001
  5. FOSAMAX [Suspect]
     Route: 048
     Dates: start: 20080101, end: 20100604

REACTIONS (10)
  - BONE DENSITY DECREASED [None]
  - FEMUR FRACTURE [None]
  - GASTRIC CANCER [None]
  - BLOOD CHOLESTEROL INCREASED [None]
  - DENTAL CARIES [None]
  - OSTEOPOROSIS [None]
  - FALL [None]
  - VITAMIN D DEFICIENCY [None]
  - DIABETES MELLITUS [None]
  - MULTIPLE FRACTURES [None]
